FAERS Safety Report 8250324-5 (Version None)
Quarter: 2012Q2

REPORT INFORMATION
  Report Type: 
  Country: None (occurrence: None)
  Receive Date: 20120402
  Receipt Date: 20120322
  Transmission Date: 20120825
  Serious: Yes (Other)
  Sender: FDA-Public Use
  Company Number: BR-ASTRAZENECA-2012SE19811

PATIENT
  Age: 61 Year
  Sex: Female

DRUGS (8)
  1. ENALAPRIL [Concomitant]
     Indication: HYPERTENSION
     Route: 048
  2. CRESTOR [Suspect]
     Route: 048
     Dates: end: 20111101
  3. METOPROLOL SUCCINATE [Suspect]
     Route: 048
     Dates: start: 20111101
  4. BRILINTA [Suspect]
     Route: 048
     Dates: start: 20111101
  5. LOSARTAN POTASSIUM [Concomitant]
     Route: 048
  6. CALTREN [Concomitant]
     Route: 048
  7. AMIODARONE HYDROCHLORIDE [Concomitant]
     Route: 048
  8. SOMALGIN CARDIO [Concomitant]
     Route: 048

REACTIONS (3)
  - OFF LABEL USE [None]
  - MYOCARDIAL INFARCTION [None]
  - CORONARY ARTERY OCCLUSION [None]
